FAERS Safety Report 7411401-1 (Version None)
Quarter: 2011Q2

REPORT INFORMATION
  Report Type: 
  Country: None (occurrence: None)
  Receive Date: 20110413
  Receipt Date: 20100720
  Transmission Date: 20111010
  Serious: No
  Sender: FDA-Public Use
  Company Number: US-BRISTOL-MYERS SQUIBB COMPANY-15200504

PATIENT
  Age: 69 Year
  Sex: Male

DRUGS (2)
  1. ERBITUX [Suspect]
     Dosage: NO OF TREATMENT RECEIVED:6
     Dates: start: 20100614
  2. CISPLATIN [Concomitant]

REACTIONS (1)
  - RASH [None]
